FAERS Safety Report 15884209 (Version 1)
Quarter: 2019Q1

REPORT INFORMATION
  Report Type: Spontaneous
  Country: US (occurrence: US)
  Receive Date: 20190129
  Receipt Date: 20190129
  Transmission Date: 20190417
  Serious: No
  Sender: FDA-Public Use
  Company Number: US-PFIZER INC-2017208785

PATIENT
  Age: 64 Year
  Sex: Female
  Weight: 79.2 kg

DRUGS (36)
  1. LYRICA [Suspect]
     Active Substance: PREGABALIN
     Indication: NEURITIS
     Dosage: 100 MG, 2X/DAY
     Route: 048
     Dates: start: 20170119
  2. LYRICA [Suspect]
     Active Substance: PREGABALIN
     Indication: FIBROMYALGIA
     Dosage: 75 MG, DAILY (INCREASE TO 3 CAPS IN AM )
  3. BUSPAR [Concomitant]
     Active Substance: BUSPIRONE HYDROCHLORIDE
     Dosage: 45 MG, 2X/DAY
     Route: 048
  4. PRAVACHOL [Concomitant]
     Active Substance: PRAVASTATIN SODIUM
     Dosage: 10 MG, 1X/DAY
     Route: 048
     Dates: start: 20170310, end: 20180310
  5. PREVIDENT [Concomitant]
     Active Substance: SODIUM FLUORIDE
     Dosage: UNK UNK, 1X/DAY (5000 BOOSTER PLUS )
     Dates: start: 20161121
  6. TORADOL [Concomitant]
     Active Substance: KETOROLAC TROMETHAMINE
     Indication: PAIN
     Dosage: 10 MG, AS NEEDED (EVERY 6 HOURS)
     Route: 048
     Dates: start: 20160903
  7. PRILOSEC [Concomitant]
     Active Substance: OMEPRAZOLE MAGNESIUM
     Dosage: 40 MG, AS NEEDED (1 TIME A DAY)
     Route: 048
  8. HYTONE [Concomitant]
     Active Substance: HYDROCORTISONE
     Indication: PSORIASIS
     Dosage: UNK UNK, AS NEEDED (APPLY TO AFFECTED AREA 2 TIMES A DAY)
  9. BACITRACIN. [Concomitant]
     Active Substance: BACITRACIN
     Indication: PSORIASIS
     Dosage: UNK UNK, AS NEEDED (APPLY TO AFFECTED AREA 2 TIMES A DAY AS NEEDED )
  10. LYRICA [Suspect]
     Active Substance: PREGABALIN
     Indication: PAIN
     Dosage: 400 MG, DAILY  (2 CAPSULE IN AM, ONE IN AFTERNOON AND EVENING FOR 10 DAYS)
     Dates: start: 20170426
  11. TEMOVATE [Concomitant]
     Active Substance: CLOBETASOL PROPIONATE
     Dosage: UNK UNK, AS NEEDED
     Dates: start: 20170220
  12. SYSTANE ULTRA [Concomitant]
     Active Substance: POLYETHYLENE GLYCOL 400\PROPYLENE GLYCOL
     Dosage: 1 GTT, AS NEEDED [MACROGOL 400: 0.4 %]/ [PROPYLENE GLYCOL: 0.3 %] (1 DROP/ EVERY 4 HOURS)
     Route: 047
  13. LYRICA [Suspect]
     Active Substance: PREGABALIN
     Indication: NEURALGIA
     Dosage: 25 MG, 1X/DAY (ONE CAPSULE AT BEDTIME FOR 7 DAYS THEN EVERY 7 DAYS INCREASE BY ONE UNTIL TAKING 3)
     Dates: start: 20161207
  14. LYRICA [Suspect]
     Active Substance: PREGABALIN
     Dosage: 200 MG, 3X/DAY (TAKE 2 TABLETS)
     Route: 048
     Dates: start: 20170509
  15. STELARA [Concomitant]
     Active Substance: USTEKINUMAB
     Dosage: UNK
     Route: 058
     Dates: start: 20170126
  16. LYRICA [Suspect]
     Active Substance: PREGABALIN
     Indication: NEURALGIA
     Dosage: 50 MG, DAILY (2 CAPS IN AM ONCE DAILY FOR 5 DAYS)
     Dates: start: 20170119
  17. ROBAXIN [Concomitant]
     Active Substance: METHOCARBAMOL
     Dosage: UNK UNK, AS NEEDED
     Dates: start: 20170216
  18. ELIDEL [Concomitant]
     Active Substance: PIMECROLIMUS
     Indication: PSORIASIS
     Dosage: UNK UNK, AS NEEDED (APPLY TO AFFECTED AREA)
     Dates: start: 20141023
  19. NEOMYCIN W/POLYMYXIN [Concomitant]
     Indication: PSORIASIS
     Dosage: UNK UNK, AS NEEDED (APPLY TO THE EARS)
  20. ATARAX [Concomitant]
     Active Substance: HYDROXYZINE HYDROCHLORIDE
     Indication: PRURITUS
     Dosage: 25 MG, AS NEEDED (EVERY 8 HOURS)
     Route: 048
  21. ALAWAY [Concomitant]
     Active Substance: KETOTIFEN FUMARATE
     Indication: EYE PRURITUS
     Dosage: 1 GTT, AS NEEDED (1 DROP INTO BOTH EYES 2 TIMES A DAY)
     Route: 047
     Dates: start: 20170419
  22. LIDODERM [Concomitant]
     Active Substance: LIDOCAINE
     Indication: PAIN
     Dosage: 1 DF, AS NEEDED (APPLY 1 PATCH1 TIME A DAY) (MAY BE LEFT ON FOR UP TO 12 HOURS IN A 24 HOURS PERIOD)
     Route: 061
     Dates: start: 20170310
  23. CALAN [Concomitant]
     Active Substance: VERAPAMIL HYDROCHLORIDE
     Dosage: 40 MG, 3X/DAY
     Route: 048
     Dates: start: 20161209
  24. BACTROBAN [Concomitant]
     Active Substance: MUPIROCIN\MUPIROCIN CALCIUM
     Dosage: UNK UNK, AS NEEDED (APPLY TO AFFECTED AREA 2 TIMES A DAY)
  25. ZADITOR [Concomitant]
     Active Substance: KETOTIFEN FUMARATE
     Indication: EYE PRURITUS
     Dosage: 1 GTT, AS NEEDED (1 DROP INTO BOTH EYES 2 TIMES A DAY)
     Route: 047
     Dates: start: 20170419
  26. MOBIC [Concomitant]
     Active Substance: MELOXICAM
     Dosage: 7.5 MG, AS NEEDED
     Route: 048
     Dates: start: 20160909
  27. TYLENOL [Concomitant]
     Active Substance: ACETAMINOPHEN
     Indication: PAIN
     Dosage: 650 MG, AS NEEDED (4 TIMES A DAY)
     Route: 048
  28. ELOCON [Concomitant]
     Active Substance: MOMETASONE FUROATE
     Dosage: UNK UNK, 1X/DAY  (APPLY TO AFFECTED AREA)
  29. VENTOLIN [Concomitant]
     Active Substance: ALBUTEROL SULFATE
     Dosage: UNK UNK, AS NEEDED (INHALE 2 PUFFS ORALLY EVERY 4 HOURS) (108 (90 BASE) MCG/ACT INHALER)
     Route: 055
  30. LYRICA [Suspect]
     Active Substance: PREGABALIN
     Indication: BACK DISORDER
     Dosage: 500 MG, DAILY  (2 CAPSULES IN AM AND AFTERNOON WITH ONE IN EVENING FOR 10 DAYS)
  31. EFFEXOR XR [Concomitant]
     Active Substance: VENLAFAXINE HYDROCHLORIDE
     Dosage: 300 MG, 1X/DAY (TAKE 2 CAPSULES)
     Route: 048
     Dates: start: 20160903
  32. LYRICA [Suspect]
     Active Substance: PREGABALIN
     Indication: SPINAL CORD DISORDER
     Dosage: 200 MG, 3X/DAY (MAY INCREASE TO 2 CAPSULES THREE TIMES PER DAY)
  33. DESYREL [Concomitant]
     Active Substance: TRAZODONE HYDROCHLORIDE
     Dosage: 100 MG, 1X/DAY  (1 TIME PER DAY 2 TABLETS AT BEDTIME)
     Dates: start: 20161121
  34. KLONOPIN [Concomitant]
     Active Substance: CLONAZEPAM
     Dosage: 0.5 MG, 2X/DAY
     Route: 048
     Dates: start: 20160903
  35. PROVENTIL [Concomitant]
     Active Substance: ALBUTEROL
     Dosage: UNK UNK, AS NEEDED (INHALE 2 PUFFS ORALLY EVERY 4 HOURS) (108 (90 BASE) MCG/ACT INHALER)
     Route: 055
  36. PROAIR HFA [Concomitant]
     Active Substance: ALBUTEROL SULFATE
     Dosage: UNK UNK, AS NEEDED (INHALE 2 PUFFS ORALLY EVERY 4 HOURS) (108 (90 BASE) MCG/ACT INHALER)
     Route: 055

REACTIONS (1)
  - Weight increased [Not Recovered/Not Resolved]
